FAERS Safety Report 9018095 (Version 3)
Quarter: 2013Q4

REPORT INFORMATION
  Report Type: Spontaneous
  Country: US (occurrence: US)
  Receive Date: 20130117
  Receipt Date: 20131118
  Transmission Date: 20140711
  Serious: Yes (Hospitalization)
  Sender: FDA-Public Use
  Company Number: US-B.I. PHARMACEUTICALS,INC./RIDGEFIELD-2013-BI-00928BP

PATIENT
  Age: 73 Year
  Sex: Male
  Weight: 102.51 kg

DRUGS (20)
  1. PRADAXA [Suspect]
     Indication: ATRIAL FIBRILLATION
     Dosage: 300 MG
     Route: 048
     Dates: start: 20101228, end: 20110521
  2. PRADAXA [Suspect]
     Indication: CORONARY ARTERY DISEASE
  3. ASPIRIN [Concomitant]
     Indication: ATRIAL FIBRILLATION
     Dosage: 325 MG
     Route: 048
  4. ASPIRIN [Concomitant]
     Indication: ANTICOAGULANT THERAPY
  5. ASPIRIN [Concomitant]
     Indication: CORONARY ARTERY DISEASE
  6. PHOSLO [Concomitant]
     Indication: DRUG THERAPY
     Route: 048
  7. CLONIDINE [Concomitant]
     Indication: HYPERTENSION
     Dosage: 0.8 MG
     Route: 048
  8. DOXAZOSIN [Concomitant]
     Indication: HYPERTENSION
     Dosage: 4 MG
     Route: 048
     Dates: start: 2009, end: 2012
  9. MULTAQ [Concomitant]
     Indication: ATRIAL FIBRILLATION
     Dosage: 800 MG
     Route: 048
  10. LASIX [Concomitant]
     Indication: DIURETIC THERAPY
     Dosage: 40 MG
     Route: 048
  11. ISOSORBIDE DINITRATE [Concomitant]
     Indication: HYPERTENSION
     Dosage: 40 MG
     Route: 048
  12. SYNTHROID [Concomitant]
     Indication: HYPOTHYROIDISM
     Dosage: 125 MCG
     Route: 048
  13. COZAAR [Concomitant]
     Indication: HYPERTENSION
     Dosage: 100 MG
     Route: 048
  14. POTASSIUM CHLORIDE [Concomitant]
     Indication: SUPPLEMENTATION THERAPY
     Dosage: 40 MEQ
     Route: 048
  15. ZOCOR [Concomitant]
     Indication: HYPERCHOLESTEROLAEMIA
     Dosage: 40 MG
     Route: 048
  16. ALDACTONE [Concomitant]
     Indication: DIURETIC THERAPY
     Dosage: 25 MG
     Route: 048
  17. PATANASE NASAL SPRAY [Concomitant]
     Dates: start: 2009, end: 2012
  18. ZYRTEC [Concomitant]
  19. TYLENOL [Concomitant]
  20. METAMUCIL [Concomitant]

REACTIONS (1)
  - Gastrointestinal haemorrhage [Unknown]
